FAERS Safety Report 19575725 (Version 8)
Quarter: 2022Q2

REPORT INFORMATION
  Report Type: Report from Study
  Country: CA (occurrence: CA)
  Receive Date: 20210719
  Receipt Date: 20220404
  Transmission Date: 20220720
  Serious: Yes (Other)
  Sender: FDA-Public Use
  Company Number: CA-BAUSCH-BL-2020-037106

PATIENT

DRUGS (35)
  1. CONTRAVE [Suspect]
     Active Substance: BUPROPION HYDROCHLORIDE\NALTREXONE HYDROCHLORIDE
     Indication: Weight control
     Dosage: 90MG/8MG: 1 TABLET IN THE MORNING
     Route: 048
     Dates: start: 20201116, end: 20201122
  2. CONTRAVE [Suspect]
     Active Substance: BUPROPION HYDROCHLORIDE\NALTREXONE HYDROCHLORIDE
     Dosage: 90MG/8MG: 1 TABLET IN THE MORNING AND 1 IN THE EVENING
     Route: 048
     Dates: start: 20201123, end: 20201129
  3. CONTRAVE [Suspect]
     Active Substance: BUPROPION HYDROCHLORIDE\NALTREXONE HYDROCHLORIDE
     Dosage: 90MG/8MG: 2 TABLETS IN THE MORNING AND 1 IN THE EVENING (1 IN 12 HR)
     Route: 048
     Dates: start: 20201130, end: 20201206
  4. CONTRAVE [Suspect]
     Active Substance: BUPROPION HYDROCHLORIDE\NALTREXONE HYDROCHLORIDE
     Dosage: 90MG/8MG: 2 TABLETS IN THE MORNING AND 2 IN THE EVENING
     Route: 048
     Dates: start: 20201207, end: 20210608
  5. CONTRAVE [Suspect]
     Active Substance: BUPROPION HYDROCHLORIDE\NALTREXONE HYDROCHLORIDE
     Dosage: 90/8 MG (1 DOSAGE FORMS,1 IN 1 D)
     Route: 048
     Dates: start: 20211101, end: 20211107
  6. CONTRAVE [Suspect]
     Active Substance: BUPROPION HYDROCHLORIDE\NALTREXONE HYDROCHLORIDE
     Dosage: 90/8 MG (1 DOSAGE FORMS, 1 IN 12 HR)
     Route: 048
     Dates: start: 20211108, end: 20211114
  7. CONTRAVE [Suspect]
     Active Substance: BUPROPION HYDROCHLORIDE\NALTREXONE HYDROCHLORIDE
     Dosage: 90/8 MG 2 TABS AM, 1 TAB PM (1 IN 12 HR)
     Route: 048
     Dates: start: 20211115, end: 202111
  8. CONTRAVE [Suspect]
     Active Substance: BUPROPION HYDROCHLORIDE\NALTREXONE HYDROCHLORIDE
     Dosage: 90/8 MG (1 TAB BID)
     Route: 048
     Dates: start: 20211122, end: 20211225
  9. VICTOZA [Concomitant]
     Active Substance: LIRAGLUTIDE
     Indication: Obesity
     Dosage: ROUTE: INJECTION (3 MG, 1 IN1 D)
     Dates: end: 20211225
  10. VICTOZA [Concomitant]
     Active Substance: LIRAGLUTIDE
     Indication: Weight decreased
  11. NITROGLYCERIN [Concomitant]
     Active Substance: NITROGLYCERIN
     Indication: Chest pain
     Dosage: AS NEEDED
     Route: 060
  12. LEVOTHYROXINE [Concomitant]
     Active Substance: LEVOTHYROXINE
     Indication: Thyroid disorder
     Dosage: 50 MCG, 1 IN 1 D
     Route: 048
  13. ROSUVASTATIN [Concomitant]
     Active Substance: ROSUVASTATIN
     Indication: Blood cholesterol abnormal
     Dosage: 10 MG, 1 IN 1 D
     Route: 048
  14. ROSUVASTATIN [Concomitant]
     Active Substance: ROSUVASTATIN
     Dosage: UNK
     Route: 058
  15. ALLOPURINOL [Concomitant]
     Active Substance: ALLOPURINOL
     Indication: Renal disorder
     Dosage: UNK
     Route: 048
  16. ALLOPURINOL [Concomitant]
     Active Substance: ALLOPURINOL
     Indication: Hypertension
  17. PANTOPRAZOLE [Concomitant]
     Active Substance: PANTOPRAZOLE
     Indication: Abdominal discomfort
     Dosage: (1 IN 1 D)
     Route: 048
  18. PREGABALIN [Concomitant]
     Active Substance: PREGABALIN
     Indication: Nerve injury
     Dosage: 150 MG (75 MG,1 IN 12 HR)
     Route: 048
  19. FUROSEMIDE [Concomitant]
     Active Substance: FUROSEMIDE
     Indication: Fluid retention
     Dosage: 40 MG,1 IN 1 D
     Route: 048
  20. FUROSEMIDE [Concomitant]
     Active Substance: FUROSEMIDE
     Indication: Hypertension
  21. HYDRALAZINE [Concomitant]
     Active Substance: HYDRALAZINE HYDROCHLORIDE
     Indication: Blood pressure abnormal
     Dosage: 50 MG (25 MG, 1 IN 12 HR)
     Route: 048
  22. HYDRALAZINE [Concomitant]
     Active Substance: HYDRALAZINE HYDROCHLORIDE
     Indication: Hypertension
  23. ROPINIROLE [Concomitant]
     Active Substance: ROPINIROLE
     Indication: Reflexes abnormal
     Dosage: AM (1 MG, 1 IN 1 D)
     Route: 048
  24. ROPINIROLE [Concomitant]
     Active Substance: ROPINIROLE
     Indication: Restless legs syndrome
     Dosage: BEDTIME (2 MG, 1 IN 1 D)
     Route: 048
  25. ROPINIROLE [Concomitant]
     Active Substance: ROPINIROLE
     Dosage: UNK
  26. SERTRALINE [Concomitant]
     Active Substance: SERTRALINE HYDROCHLORIDE
     Indication: Depression
     Dosage: 100 MG, 1 IN 1 D
     Route: 048
  27. ALENDRONATE [Concomitant]
     Active Substance: ALENDRONATE SODIUM
     Indication: Bone disorder
     Dosage: 70 MG, 1 IN 1 D
     Route: 048
  28. SYMBICORT [Concomitant]
     Active Substance: BUDESONIDE\FORMOTEROL FUMARATE DIHYDRATE
     Indication: Hypersensitivity
     Dosage: PRM IF ALLERGY OR COLD (1 IN 1 AS REQUIRED)
  29. SYMBICORT [Concomitant]
     Active Substance: BUDESONIDE\FORMOTEROL FUMARATE DIHYDRATE
     Indication: Nasopharyngitis
  30. ALBUTEROL SULFATE [Concomitant]
     Active Substance: ALBUTEROL SULFATE
     Indication: Product used for unknown indication
     Dosage: PRN (1 IN 1 AS REQUIRED)
  31. NITROGLYCERIN [Concomitant]
     Active Substance: NITROGLYCERIN
     Indication: Cardiac disorder
     Dosage: PRN (4 MG, 1 IN 1 AS REQUIRED)
     Route: 060
  32. NITROGLYCERIN [Concomitant]
     Active Substance: NITROGLYCERIN
     Indication: Chest pain
  33. NITRAZEPAM [Concomitant]
     Active Substance: NITRAZEPAM
     Indication: Sleep disorder
     Dosage: 2-3 TABLETS AT BEDTIME FOR SLEEP (10 MG, 1 IN 1 D)
     Route: 048
  34. SENOKOT [Concomitant]
     Active Substance: SENNOSIDES
     Indication: Constipation
     Dosage: 8.6 MG PRN (8.6 MG)
     Route: 048
  35. JAMP HYDRALAZINE [Concomitant]
     Indication: Hypertension
     Dosage: 25 MG, 1 IN 1 D
     Route: 048

REACTIONS (23)
  - Hip surgery [Unknown]
  - Fall [Recovered/Resolved]
  - Foot fracture [Unknown]
  - Eating disorder [Unknown]
  - Weight increased [Unknown]
  - Psychiatric symptom [Not Recovered/Not Resolved]
  - Arthritis [Unknown]
  - Intervertebral disc degeneration [Unknown]
  - Back pain [Not Recovered/Not Resolved]
  - Neck pain [Not Recovered/Not Resolved]
  - Chest pain [Recovered/Resolved]
  - Dyspepsia [Not Recovered/Not Resolved]
  - Arthralgia [Not Recovered/Not Resolved]
  - Depression [Not Recovered/Not Resolved]
  - Stress [Unknown]
  - Nightmare [Unknown]
  - Insomnia [Not Recovered/Not Resolved]
  - Constipation [Not Recovered/Not Resolved]
  - Dizziness [Not Recovered/Not Resolved]
  - Therapeutic product effect incomplete [Unknown]
  - Inability to afford medication [Unknown]
  - Intentional product use issue [Unknown]
  - Therapy cessation [Unknown]

NARRATIVE: CASE EVENT DATE: 20201201
